FAERS Safety Report 9912466 (Version 1)
Quarter: 2014Q1

REPORT INFORMATION
  Report Type: Spontaneous
  Country: CA (occurrence: CA)
  Receive Date: 20140220
  Receipt Date: 20140220
  Transmission Date: 20141002
  Serious: Yes (Other)
  Sender: FDA-Public Use
  Company Number: CA-ROCHE-756100

PATIENT
  Age: 79 Year
  Sex: Female

DRUGS (2)
  1. AVASTIN [Suspect]
     Indication: PRODUCT USED FOR UNKNOWN INDICATION
     Route: 065
  2. AVASTIN [Suspect]
     Dosage: ROUTE: INTRAVENOUS, FORM: SOLUTION.
     Route: 042

REACTIONS (2)
  - Endophthalmitis [Recovered/Resolved]
  - Toxic anterior segment syndrome [Recovered/Resolved]
